FAERS Safety Report 4821063-5 (Version None)
Quarter: 2005Q4

REPORT INFORMATION
  Report Type: 
  Country: None (occurrence: None)
  Receive Date: 20051104
  Receipt Date: 20050719
  Transmission Date: 20060501
  Serious: Yes (Hospitalization, Disabling)
  Sender: FDA-Public Use
  Company Number: US-MERCK-0507USA02757

PATIENT
  Age: 59 Year
  Sex: Female
  Weight: 55 kg

DRUGS (15)
  1. VIOXX [Suspect]
     Indication: ARTHRITIS
     Route: 048
     Dates: start: 20000905, end: 20020318
  2. VIOXX [Suspect]
     Route: 048
     Dates: start: 20020430, end: 20020501
  3. VIOXX [Suspect]
     Route: 048
     Dates: start: 20020501, end: 20020501
  4. VIOXX [Suspect]
     Route: 048
     Dates: start: 20020219
  5. BELLAMINE S [Concomitant]
     Indication: MENOPAUSAL SYMPTOMS
     Route: 065
  6. CELEBREX [Suspect]
     Route: 065
  7. PREMPRO [Concomitant]
     Indication: NASAL DECONGESTION THERAPY
     Route: 065
  8. CYCLOBENZAPRINE HYDROCHLORIDE [Concomitant]
     Indication: MUSCLE SPASMS
     Route: 065
  9. DIAZEPAM [Concomitant]
     Indication: MUSCLE SPASMS
     Route: 065
  10. EVISTA [Concomitant]
     Indication: OSTEOPOROSIS
     Route: 065
  11. ACETAMINOPHEN AND HYDROCODONE BITARTRATE [Concomitant]
     Indication: PAIN
     Route: 065
  12. INDOMETHACIN [Concomitant]
     Indication: OSTEOPOROSIS
     Route: 065
  13. METOPROLOL [Concomitant]
     Indication: HYPERTENSION
     Route: 065
  14. PREMARIN [Concomitant]
     Indication: HORMONE REPLACEMENT THERAPY
     Route: 048
     Dates: start: 19950207
  15. SYNTHROID [Concomitant]
     Indication: THYROID DISORDER
     Route: 065

REACTIONS (9)
  - ANGINA PECTORIS [None]
  - BRONCHOPNEUMONIA [None]
  - CORONARY ARTERY DISEASE [None]
  - DIZZINESS [None]
  - DRUG INEFFECTIVE [None]
  - HYPERLIPIDAEMIA [None]
  - MUSCLE SPASMS [None]
  - MYOCARDIAL INFARCTION [None]
  - PLEURISY [None]
